FAERS Safety Report 7820295-1 (Version None)
Quarter: 2011Q4

REPORT INFORMATION
  Report Type: 
  Country: None (occurrence: None)
  Receive Date: 20111012
  Receipt Date: 20111003
  Transmission Date: 20120403
  Serious: Yes (Other)
  Sender: FDA-Public Use
  Company Number: 2011SP046591

PATIENT
  Age: 14 Year
  Sex: Female
  Weight: 68 kg

DRUGS (1)
  1. NEXPLANON [Suspect]
     Indication: CONTRACEPTION
     Dosage: 68 MG; SBDE
     Route: 059
     Dates: start: 20110830, end: 20110909

REACTIONS (3)
  - LIP SWELLING [None]
  - HYPERSENSITIVITY [None]
  - RASH [None]
